FAERS Safety Report 6969640-X (Version None)
Quarter: 2010Q3

REPORT INFORMATION
  Report Type: 
  Country: None (occurrence: None)
  Receive Date: 20100908
  Receipt Date: 20100902
  Transmission Date: 20110219
  Serious: Yes (Other)
  Sender: FDA-Public Use
  Company Number: US-ASTRAZENECA-2006UW10789

PATIENT
  Age: 558 Month
  Sex: Female
  Weight: 67.1 kg

DRUGS (29)
  1. SEROQUEL [Suspect]
     Indication: BIPOLAR DISORDER
     Route: 048
     Dates: start: 20011001, end: 20030501
  2. SEROQUEL [Suspect]
     Route: 048
     Dates: start: 20011107
  3. SEROQUEL [Suspect]
     Route: 048
     Dates: start: 20040401, end: 20040801
  4. ABILIFY [Concomitant]
     Dates: start: 20050101, end: 20050301
  5. GEODON [Concomitant]
     Dates: start: 20030101, end: 20040101
  6. GEODON [Concomitant]
     Dates: start: 20060701
  7. HALDOL [Concomitant]
     Dates: start: 19990201, end: 19990701
  8. RISPERDAL [Concomitant]
     Dates: start: 19990801, end: 19991001
  9. TRILAFON [Concomitant]
     Dates: start: 19770101
  10. ZYPREXA [Concomitant]
     Dates: start: 19991001, end: 19991201
  11. LAMICTAL [Concomitant]
     Indication: MOOD SWINGS
     Route: 048
     Dates: start: 20011107
  12. LAMICTAL [Concomitant]
     Dates: start: 20100727
  13. EFFEXOR [Concomitant]
     Indication: DEPRESSION
     Dosage: 150 IN THE MORNIING AND 75 AT 3 PM
     Route: 048
     Dates: start: 20011107
  14. EFFEXOR [Concomitant]
     Dosage: 150 TO 300 MG DAILY
     Dates: start: 20100727
  15. ATIVAN [Concomitant]
     Indication: AGITATION
     Route: 048
     Dates: start: 19990101
  16. PREMPRO [Concomitant]
     Route: 048
     Dates: start: 20011113
  17. THYROID TAB [Concomitant]
     Dosage: 1 GRAM IN THE MORNING
     Route: 048
     Dates: start: 19990101
  18. AMBIEN [Concomitant]
     Indication: SLEEP DISORDER
     Dates: start: 20061027
  19. SYNTHROID [Concomitant]
     Dates: start: 20061027
  20. SYNTHROID [Concomitant]
     Dates: start: 20060724
  21. KLONOPIN [Concomitant]
     Dates: start: 20060724
  22. KLONOPIN [Concomitant]
     Dates: start: 20061027
  23. TRAZODONE HCL [Concomitant]
     Dates: start: 20061027
  24. MOTRIN [Concomitant]
     Dosage: 200 MG AS REQUIRED
     Dates: start: 20061027
  25. VICODIN [Concomitant]
     Dates: start: 20061027
  26. NEURONTIN [Concomitant]
     Dates: start: 20100727
  27. CYTOMEL [Concomitant]
     Dates: start: 20100727
  28. LOPID [Concomitant]
     Dates: start: 20100727
  29. DESYREL [Concomitant]
     Dosage: 100 TO 300 MG
     Route: 048
     Dates: start: 20060724

REACTIONS (6)
  - GASTROINTESTINAL DISORDER [None]
  - GLUCOSE TOLERANCE IMPAIRED [None]
  - HYPERGLYCAEMIA [None]
  - NEUROPATHY PERIPHERAL [None]
  - TYPE 2 DIABETES MELLITUS [None]
  - WEIGHT INCREASED [None]
